FAERS Safety Report 10049562 (Version 1)
Quarter: 2014Q1

REPORT INFORMATION
  Report Type: Spontaneous
  Country: US (occurrence: None)
  Receive Date: 20140328
  Receipt Date: 20140328
  Transmission Date: 20141002
  Serious: Yes (Death)
  Sender: FDA-Public Use
  Company Number: AUR-APL-2014-03772

PATIENT
  Age: 33 Year
  Sex: Female

DRUGS (5)
  1. OXYCODONE [Suspect]
     Indication: PRODUCT USED FOR UNKNOWN INDICATION
     Route: 048
  2. TOPIRAMATE (TOPIRAMATE) [Suspect]
     Indication: PRODUCT USED FOR UNKNOWN INDICATION
  3. HYDROCODONE (HYDROCODONE) [Suspect]
     Indication: PRODUCT USED FOR UNKNOWN INDICATION
  4. ACETAMINOPHEN (PARACETAMOL) [Suspect]
     Indication: PRODUCT USED FOR UNKNOWN INDICATION
  5. PHENYTOIN (PHENYTOIN) [Suspect]
     Indication: PRODUCT USED FOR UNKNOWN INDICATION

REACTIONS (3)
  - Completed suicide [None]
  - Exposure via ingestion [None]
  - Toxicity to various agents [None]
